FAERS Safety Report 16531448 (Version 1)
Quarter: 2019Q3

REPORT INFORMATION
  Report Type: Spontaneous
  Country: US (occurrence: US)
  Receive Date: 20190705
  Receipt Date: 20190705
  Transmission Date: 20191004
  Serious: No
  Sender: FDA-Public Use
  Company Number: US-TEVA-2019-US-1069641

PATIENT
  Sex: Female

DRUGS (1)
  1. BUSPIRONE HYDROCHLORIDE TABLETS [Suspect]
     Active Substance: BUSPIRONE HYDROCHLORIDE
     Indication: ANXIETY
     Route: 065
     Dates: start: 20190611

REACTIONS (4)
  - Nausea [Unknown]
  - Dizziness [Unknown]
  - Sensation of foreign body [Unknown]
  - Migraine [Unknown]

NARRATIVE: CASE EVENT DATE: 20190611
